FAERS Safety Report 23501005 (Version 1)
Quarter: 2024Q1

REPORT INFORMATION
  Report Type: Report from Study
  Country: US (occurrence: US)
  Receive Date: 20240208
  Receipt Date: 20240208
  Transmission Date: 20240409
  Serious: Yes (Other)
  Sender: FDA-Public Use
  Company Number: US-drreddys-CLI/USA/23/0161304

PATIENT
  Age: 20 Year
  Sex: Female

DRUGS (4)
  1. ZENATANE [Suspect]
     Active Substance: ISOTRETINOIN
     Indication: Product used for unknown indication
     Dates: start: 2022, end: 2022
  2. ZENATANE [Suspect]
     Active Substance: ISOTRETINOIN
     Dosage: RMA ISSUE DATE: 10 AUGUST 2022 08:14:09 PM, 07 OCTOBER 2022 08:02:30 PM, 12 JANUARY 2023 02:28:30 PM
     Dates: start: 20230112, end: 20230207
  3. ZENATANE [Suspect]
     Active Substance: ISOTRETINOIN
     Dates: start: 20221222, end: 20230127
  4. ZENATANE [Suspect]
     Active Substance: ISOTRETINOIN
     Dates: start: 20220901, end: 20230101

REACTIONS (2)
  - Abortion induced [Unknown]
  - Exposure during pregnancy [Unknown]

NARRATIVE: CASE EVENT DATE: 20230127
